FAERS Safety Report 26200673 (Version 1)
Quarter: 2025Q4

REPORT INFORMATION
  Report Type: Spontaneous
  Country: US (occurrence: US)
  Receive Date: 20251225
  Receipt Date: 20251225
  Transmission Date: 20260117
  Serious: Yes (Other)
  Sender: AMGEN
  Company Number: US-AMGEN-USASP2025251902

PATIENT

DRUGS (1)
  1. PREDNISONE [Suspect]
     Active Substance: PREDNISONE
     Indication: Immunosuppressant drug therapy
     Dosage: UNK
     Route: 065

REACTIONS (44)
  - Skin cancer [Unknown]
  - Growth retardation [Unknown]
  - Neoplasm malignant [Unknown]
  - Diabetes mellitus [Unknown]
  - Neuropathy peripheral [Unknown]
  - Headache [Unknown]
  - Muscular weakness [Unknown]
  - Libido decreased [Unknown]
  - Fatigue [Unknown]
  - Feeling jittery [Unknown]
  - Insomnia [Unknown]
  - Depression [Unknown]
  - Anxiety [Unknown]
  - Alopecia [Unknown]
  - Weight increased [Unknown]
  - Contusion [Unknown]
  - Diarrhoea [Unknown]
  - Vision blurred [Unknown]
  - Appetite disorder [Unknown]
  - Nausea [Unknown]
  - Rash [Unknown]
  - Hair growth abnormal [Unknown]
  - Cheilitis [Unknown]
  - Infertility [Unknown]
  - Menstrual disorder [Unknown]
  - Seborrhoea [Unknown]
  - Renal disorder [Unknown]
  - Blood pressure abnormal [Unknown]
  - Bone loss [Unknown]
  - Arthropathy [Unknown]
  - Infection [Unknown]
  - Muscle disorder [Unknown]
  - Oedema [Unknown]
  - Tooth disorder [Unknown]
  - Brain fog [Unknown]
  - Tremor [Unknown]
  - Mouth ulceration [Unknown]
  - Gastrointestinal disorder [Unknown]
  - Skin disorder [Unknown]
  - Hypertension [Unknown]
  - Hyperglycaemia [Unknown]
  - Vomiting [Unknown]
  - Pain [Unknown]
  - Weight decreased [Unknown]
